FAERS Safety Report 7341592-2 (Version None)
Quarter: 2011Q1

REPORT INFORMATION
  Report Type: 
  Country: None (occurrence: None)
  Receive Date: 20110309
  Receipt Date: 20110304
  Transmission Date: 20110831
  Serious: Yes (Other)
  Sender: FDA-Public Use
  Company Number: US-PFIZER INC-2010154732

PATIENT
  Sex: Male

DRUGS (11)
  1. GLYBURIDE [Concomitant]
     Indication: DIABETES MELLITUS
     Dosage: UNK
     Dates: start: 20020101
  2. HYDROCODONE [Concomitant]
     Indication: ANALGESIC THERAPY
     Dosage: UNK
     Dates: start: 20070101, end: 20101201
  3. RANITIDINE [Concomitant]
     Indication: GASTROOESOPHAGEAL REFLUX DISEASE
     Dosage: UNK
     Dates: start: 20060101
  4. METFORMIN [Concomitant]
     Indication: DIABETES MELLITUS
     Dosage: UNK
     Dates: start: 20020101
  5. ZOLOFT [Concomitant]
     Indication: DEPRESSION
     Dosage: UNK
     Dates: start: 20081101
  6. LOVAZA [Concomitant]
     Indication: BLOOD TRIGLYCERIDES INCREASED
     Dosage: UNK
     Dates: start: 20060101
  7. CHANTIX [Suspect]
     Indication: SMOKING CESSATION THERAPY
     Dosage: UNK
     Dates: start: 20090501, end: 20090601
  8. QUININE [Concomitant]
     Indication: MUSCLE SPASMS
     Dosage: UNK
     Dates: start: 19950101
  9. BENAZEPRIL [Concomitant]
     Indication: HYPERTENSION
     Dosage: UNK
     Dates: start: 20060101
  10. ZOLOFT [Concomitant]
     Indication: BIPOLAR DISORDER
  11. KLOR-CON [Concomitant]
     Indication: HYPOKALAEMIC SYNDROME
     Dosage: UNK
     Dates: start: 20070101, end: 20100101

REACTIONS (6)
  - BIPOLAR DISORDER [None]
  - MOOD SWINGS [None]
  - AGGRESSION [None]
  - ANXIETY [None]
  - SUICIDAL BEHAVIOUR [None]
  - DEPRESSION [None]
